FAERS Safety Report 16325656 (Version 3)
Quarter: 2019Q4

REPORT INFORMATION
  Report Type: Spontaneous
  Country: US (occurrence: US)
  Receive Date: 20190517
  Receipt Date: 20191020
  Transmission Date: 20200122
  Serious: No
  Sender: FDA-Public Use
  Company Number: US-GLAXOSMITHKLINE-US2019AMR083674

PATIENT
  Age: 24 Year
  Sex: Male

DRUGS (2)
  1. NUCALA [Suspect]
     Active Substance: MEPOLIZUMAB
     Indication: ASTHMA
     Dosage: 100 MG, UNK
     Route: 058
     Dates: start: 20160801
  2. NUCALA [Suspect]
     Active Substance: MEPOLIZUMAB
     Indication: EOSINOPHILIC GRANULOMATOSIS WITH POLYANGIITIS
     Dosage: 300 MG, CYC
     Route: 058
     Dates: start: 20160815

REACTIONS (13)
  - Nasopharyngitis [Unknown]
  - Sinusitis [Unknown]
  - Drug implantation [Unknown]
  - Underdose [Unknown]
  - Hypersensitivity [Unknown]
  - Dyspnoea [Unknown]
  - Dysphonia [Unknown]
  - Nasal polyps [Unknown]
  - Sleep disorder [Unknown]
  - Sinus operation [Unknown]
  - Nasal congestion [Unknown]
  - Macule [Unknown]
  - Condition aggravated [Unknown]

NARRATIVE: CASE EVENT DATE: 201712
